FAERS Safety Report 20314338 (Version 2)
Quarter: 2022Q1

REPORT INFORMATION
  Report Type: Spontaneous
  Country: US (occurrence: US)
  Receive Date: 20220109
  Receipt Date: 20220302
  Transmission Date: 20220424
  Serious: No
  Sender: FDA-Public Use
  Company Number: US-SA-SAC20220107000172

PATIENT
  Age: 54 Year
  Sex: Female

DRUGS (1)
  1. DUPIXENT [Suspect]
     Active Substance: DUPILUMAB
     Indication: Pruritus
     Dosage: 300 MG, QOW
     Route: 058
     Dates: start: 20210402

REACTIONS (3)
  - Weight decreased [Unknown]
  - Product use in unapproved indication [Unknown]
  - Product dose omission issue [Unknown]

NARRATIVE: CASE EVENT DATE: 20220218
